FAERS Safety Report 9272873 (Version 5)
Quarter: 2013Q2

REPORT INFORMATION
  Report Type: Spontaneous
  Country: IT (occurrence: IT)
  Receive Date: 20130506
  Receipt Date: 20130619
  Transmission Date: 20140414
  Serious: Yes (Other)
  Sender: FDA-Public Use
  Company Number: IT-PFIZER INC-2013138192

PATIENT
  Age: 31 Year
  Sex: Female
  Weight: 60 kg

DRUGS (6)
  1. XANAX [Suspect]
     Dosage: 2.5 MG, TOTAL DOSE
     Route: 048
     Dates: start: 20130401, end: 20130401
  2. ZOLOFT [Suspect]
     Dosage: 750 MG, TOTAL DOSE
     Route: 048
     Dates: start: 20130401, end: 20130401
  3. VENLAFAXINE HCL [Suspect]
     Dosage: 2100 MG, TOTAL DOSE
     Route: 048
     Dates: start: 20130401, end: 20130401
  4. LEXOTAN [Suspect]
     Dosage: 27 MG, TOTAL DOSE
     Route: 048
     Dates: start: 20130401, end: 20130401
  5. ENTACT [Suspect]
     Dosage: 15 ML, TOTAL DOSE
     Route: 048
     Dates: start: 20130401, end: 20130401
  6. DELORAZEPAM [Suspect]
     Dosage: 40 ML, TOTAL DOSE
     Route: 048
     Dates: start: 20130401, end: 20130401

REACTIONS (9)
  - Drug abuse [Recovered/Resolved]
  - Lethargy [Recovered/Resolved]
  - Mydriasis [Recovered/Resolved]
  - Speech disorder [Recovered/Resolved]
  - Face injury [Recovered/Resolved]
  - Fall [Recovered/Resolved]
  - Somnolence [Recovered/Resolved]
  - Blood pressure increased [Recovered/Resolved]
  - Coma scale [Recovered/Resolved]
